FAERS Safety Report 20873439 (Version 2)
Quarter: 2022Q3

REPORT INFORMATION
  Report Type: Report from Study
  Country: CN (occurrence: CN)
  Receive Date: 20220525
  Receipt Date: 20220713
  Transmission Date: 20221027
  Serious: Yes (Hospitalization, Other)
  Sender: FDA-Public Use
  Company Number: CN-NOVARTISPH-NVSC2022CN119563

PATIENT
  Age: 54 Year
  Sex: Male
  Weight: 54 kg

DRUGS (20)
  1. HYDROCHLOROTHIAZIDE [Suspect]
     Active Substance: HYDROCHLOROTHIAZIDE
     Indication: Oedema peripheral
     Dosage: 10 MG, BID (2X/DAY)
     Route: 048
     Dates: start: 202011, end: 20220401
  2. BUMETANIDE [Suspect]
     Active Substance: BUMETANIDE
     Indication: Oedema peripheral
     Dosage: 2 MG, BID (2X/DAY)
     Route: 048
     Dates: start: 20210908, end: 20210928
  3. BUMETANIDE [Suspect]
     Active Substance: BUMETANIDE
     Dosage: 2 MG, BID (2X/DAY)
     Route: 048
     Dates: start: 20211012, end: 20211014
  4. BUMETANIDE [Suspect]
     Active Substance: BUMETANIDE
     Dosage: 2 MG, BID
     Route: 065
     Dates: start: 20211017, end: 20211031
  5. BUMETANIDE [Suspect]
     Active Substance: BUMETANIDE
     Dosage: 2 MG, BID
     Route: 065
     Dates: start: 20211116, end: 20211130
  6. BUMETANIDE [Suspect]
     Active Substance: BUMETANIDE
     Dosage: 2 MG, BID
     Route: 065
     Dates: start: 20211216, end: 20211230
  7. BUMETANIDE [Suspect]
     Active Substance: BUMETANIDE
     Dosage: 2 MG, BID
     Route: 065
     Dates: start: 20220115, end: 20220129
  8. BUMETANIDE [Suspect]
     Active Substance: BUMETANIDE
     Dosage: 2 MG, BID
     Route: 065
     Dates: start: 20220214, end: 20220228
  9. BUMETANIDE [Suspect]
     Active Substance: BUMETANIDE
     Dosage: 2 MG, BID
     Route: 065
     Dates: start: 20220316, end: 20220323
  10. TORSEMIDE [Suspect]
     Active Substance: TORSEMIDE
     Indication: Oedema peripheral
     Dosage: 15 MG, QD
     Route: 048
     Dates: start: 20210818, end: 20210907
  11. TORSEMIDE [Suspect]
     Active Substance: TORSEMIDE
     Dosage: 15 MG, QD
     Route: 048
     Dates: start: 20210919, end: 20211011
  12. TORSEMIDE [Suspect]
     Active Substance: TORSEMIDE
     Dosage: 15 MG, QD
     Route: 065
     Dates: start: 20211101, end: 20211115
  13. TORSEMIDE [Suspect]
     Active Substance: TORSEMIDE
     Dosage: 15 MG, QD
     Route: 065
     Dates: start: 20211201, end: 20211215
  14. TORSEMIDE [Suspect]
     Active Substance: TORSEMIDE
     Dosage: 15 MG, QD
     Route: 065
     Dates: start: 20211231, end: 20220114
  15. TORSEMIDE [Suspect]
     Active Substance: TORSEMIDE
     Dosage: 15 MG, QD
     Route: 065
     Dates: start: 20220130, end: 20220213
  16. TORSEMIDE [Suspect]
     Active Substance: TORSEMIDE
     Dosage: 15 MG, QD
     Route: 065
     Dates: start: 20220301, end: 20220315
  17. TORSEMIDE [Suspect]
     Active Substance: TORSEMIDE
     Dosage: 15 MG, QD
     Route: 065
     Dates: start: 20220324, end: 20220401
  18. SPIRONOLACTONE [Suspect]
     Active Substance: SPIRONOLACTONE
     Indication: Oedema peripheral
     Dosage: 40 MG, BID (2X/DAY)
     Route: 048
     Dates: start: 202011, end: 20220401
  19. TAFAMIDIS [Suspect]
     Active Substance: TAFAMIDIS
     Indication: Cardiac amyloidosis
     Dosage: 61 MG, QD (MOST RECENT DOSE BEFORE THE EVENT)
     Route: 048
     Dates: start: 20210902, end: 20211013
  20. TAFAMIDIS [Suspect]
     Active Substance: TAFAMIDIS
     Dosage: 61 MG, QD
     Route: 065
     Dates: start: 20211125

REACTIONS (7)
  - Mental disorder [Unknown]
  - Electrolyte imbalance [Unknown]
  - Cerebral infarction [Unknown]
  - Altered state of consciousness [Unknown]
  - Electrocardiogram QT interval abnormal [Unknown]
  - Hyponatraemia [Unknown]
  - Hypochloraemia [Unknown]

NARRATIVE: CASE EVENT DATE: 20211014
